FAERS Safety Report 19942653 (Version 1)
Quarter: 2021Q4

REPORT INFORMATION
  Report Type: Spontaneous
  Country: US (occurrence: US)
  Receive Date: 20211008
  Receipt Date: 20211008
  Transmission Date: 20220304
  Serious: No
  Sender: FDA-Public Use
  Company Number: None

PATIENT
  Age: 46 Year
  Sex: Female

DRUGS (1)
  1. FERRIC GLUCONATE TRIHYDRATE [Suspect]
     Active Substance: FERRIC GLUCONATE TRIHYDRATE
     Dosage: ?          OTHER FREQUENCY:ONCE;
     Route: 042
     Dates: start: 20210630

REACTIONS (3)
  - Abdominal pain upper [None]
  - Nausea [None]
  - Product quality issue [None]

NARRATIVE: CASE EVENT DATE: 20210630
